FAERS Safety Report 16243245 (Version 1)
Quarter: 2019Q2

REPORT INFORMATION
  Report Type: Spontaneous
  Country: US (occurrence: US)
  Receive Date: 20190425
  Receipt Date: 20190425
  Transmission Date: 20190711
  Serious: No
  Sender: FDA-Public Use
  Company Number: None

PATIENT
  Age: 28 Year
  Weight: 67.5 kg

DRUGS (2)
  1. ZYRTEC [Concomitant]
     Active Substance: CETIRIZINE HYDROCHLORIDE
  2. TESTOSTERONE GEL [Suspect]
     Active Substance: TESTOSTERONE
     Indication: TRANS-SEXUALISM
     Dosage: ?          QUANTITY:5 G;?
     Route: 061
     Dates: start: 20190421, end: 20190422

REACTIONS (3)
  - Application site exfoliation [None]
  - Skin laceration [None]
  - Application site pain [None]

NARRATIVE: CASE EVENT DATE: 20190422
